FAERS Safety Report 17705015 (Version 1)
Quarter: 2020Q2

REPORT INFORMATION
  Report Type: Spontaneous
  Country: US (occurrence: US)
  Receive Date: 20200423
  Receipt Date: 20200423
  Transmission Date: 20200714
  Serious: No
  Sender: FDA-Public Use
  Company Number: None

PATIENT
  Age: 68 Year
  Sex: Male

DRUGS (2)
  1. TOPIRAMATE (TOPIRAMATE 1000MG TAB) [Suspect]
     Active Substance: TOPIRAMATE
     Indication: HEADACHE
     Route: 048
     Dates: start: 20190805, end: 20200207
  2. TOPIRAMATE (TOPIRAMATE 1000MG TAB) [Suspect]
     Active Substance: TOPIRAMATE
     Indication: PROPHYLAXIS
     Route: 048
     Dates: start: 20190805, end: 20200207

REACTIONS (2)
  - Angioedema [None]
  - Paraesthesia oral [None]

NARRATIVE: CASE EVENT DATE: 20200207
